FAERS Safety Report 9571301 (Version 3)
Quarter: 2013Q4

REPORT INFORMATION
  Report Type: Report from Study
  Country: FR (occurrence: FR)
  Receive Date: 20131001
  Receipt Date: 20131101
  Transmission Date: 20140711
  Serious: Yes (Death)
  Sender: FDA-Public Use
  Company Number: FR-BAYER-2013-102692

PATIENT
  Sex: Male
  Weight: 90 kg

DRUGS (23)
  1. REGORAFENIB [Suspect]
     Indication: COLORECTAL CANCER METASTATIC
     Dosage: 160 MG
     Route: 048
     Dates: start: 20121211, end: 20121231
  2. REGORAFENIB [Suspect]
     Indication: COLORECTAL CANCER METASTATIC
     Dosage: 160 MG
     Route: 048
     Dates: start: 20130110, end: 20130130
  3. REGORAFENIB [Suspect]
     Indication: COLORECTAL CANCER METASTATIC
     Dosage: 160 MG
     Route: 048
     Dates: start: 20130207, end: 20130227
  4. REGORAFENIB [Suspect]
     Indication: COLORECTAL CANCER METASTATIC
     Dosage: 160 MG
     Route: 048
     Dates: start: 20130307, end: 20130327
  5. REGORAFENIB [Suspect]
     Indication: COLORECTAL CANCER METASTATIC
     Dosage: 160 MG
     Route: 048
     Dates: start: 20130404, end: 20130424
  6. REGORAFENIB [Suspect]
     Indication: COLORECTAL CANCER METASTATIC
     Dosage: 160 MG
     Route: 048
     Dates: start: 20130503, end: 20130523
  7. REGORAFENIB [Suspect]
     Indication: COLORECTAL CANCER METASTATIC
     Dosage: 160 MG
     Route: 048
     Dates: start: 20130530, end: 20130619
  8. REGORAFENIB [Suspect]
     Indication: COLORECTAL CANCER METASTATIC
     Dosage: 160 MG
     Route: 048
     Dates: start: 20130627, end: 20130717
  9. REGORAFENIB [Suspect]
     Indication: COLORECTAL CANCER METASTATIC
     Dosage: 160 MG
     Route: 048
     Dates: start: 20130725, end: 20130811
  10. INNOHEP [Concomitant]
     Indication: CEREBROVASCULAR ACCIDENT
     Dosage: 18000UI/0.9 ML DAILY
     Route: 058
  11. AMLOR [Concomitant]
     Indication: HYPERTENSION
     Dosage: 10 MG DAILY
     Route: 048
  12. DOLIPRANE [Concomitant]
     Indication: PAIN
     Dosage: 500 MG, QID
     Route: 048
  13. OXYCONTIN [Concomitant]
     Indication: PAIN
     Dosage: 10 MG, BID
     Route: 048
  14. OXYCONTIN [Concomitant]
     Indication: PAIN
     Dosage: 20 MG, BID
     Route: 048
     Dates: start: 20130430
  15. OXYCODONE HYDROCHLORIDE [Concomitant]
     Indication: PAIN
     Dosage: 5 MG, QID IF PAIN
     Route: 048
  16. OXYCODONE HYDROCHLORIDE [Concomitant]
     Indication: PAIN
     Dosage: 10 MG, PRN
     Route: 048
     Dates: start: 201304
  17. COVERSYL [Concomitant]
     Indication: HYPERTENSION
     Dosage: 5 MG DAILY
     Route: 048
  18. TAHOR [Concomitant]
     Indication: HYPERCHOLESTEROLAEMIA
     Dosage: 10 MG DAILY
     Route: 048
  19. DEPAKINE [Concomitant]
     Dosage: 500 MG, BID
     Route: 048
  20. DIGOXINE [Concomitant]
     Indication: CARDIAC FAILURE
     Dosage: 0.25 MG, BID
     Route: 048
  21. KAYEXALATE [Concomitant]
     Indication: HYPERKALAEMIA
     Dosage: 454 G, BID
     Route: 048
     Dates: start: 20130122
  22. CALCIDOSE [Concomitant]
     Indication: HYPOCALCAEMIA
     Dosage: 500 MG, BID
     Route: 048
     Dates: start: 20130109
  23. SERESTA [Concomitant]
     Indication: ANXIETY
     Dosage: 10 MG DAILY
     Route: 048
     Dates: start: 20130226

REACTIONS (1)
  - Death [Fatal]
